FAERS Safety Report 5850085-0 (Version None)
Quarter: 2008Q3

REPORT INFORMATION
  Report Type: 
  Country: None (occurrence: None)
  Receive Date: 20080819
  Receipt Date: 20080812
  Transmission Date: 20090109
  Serious: Yes (Death, Hospitalization)
  Sender: FDA-Public Use
  Company Number: US-AVENTIS-200814127US

PATIENT
  Age: 69 Year
  Sex: Male

DRUGS (2)
  1. LOVENOX [Suspect]
     Dosage: DOSE: 2 INJECTION PER DAY
     Dates: start: 20080524, end: 20080602
  2. CARDIOVASCULAR SYSTEM DRUGS [Concomitant]
     Dosage: DOSE: UNK

REACTIONS (3)
  - CEREBROVASCULAR ACCIDENT [None]
  - DEATH [None]
  - MYOCARDIAL INFARCTION [None]
